FAERS Safety Report 8865729 (Version 1)
Quarter: 2012Q4

REPORT INFORMATION
  Report Type: 
  Country: US (occurrence: US)
  Receive Date: 20121024
  Receipt Date: 20121024
  Transmission Date: 20130627
  Serious: No
  Sender: FDA-Public Use
  Company Number: US-AMGEN-USASP2012004589

PATIENT
  Age: 53 Year
  Sex: Male

DRUGS (2)
  1. ENBREL [Suspect]
     Indication: PSORIASIS
     Dosage: 50 mg, qwk
     Dates: start: 20120116
  2. ENBREL [Suspect]
     Indication: PSORIATIC ARTHROPATHY

REACTIONS (4)
  - Headache [Recovered/Resolved]
  - Pollakiuria [Not Recovered/Not Resolved]
  - Thirst [Not Recovered/Not Resolved]
  - Pain in extremity [Not Recovered/Not Resolved]
